FAERS Safety Report 12248788 (Version 2)
Quarter: 2016Q2

REPORT INFORMATION
  Report Type: Spontaneous
  Country: AU (occurrence: AU)
  Receive Date: 20160408
  Receipt Date: 20160413
  Transmission Date: 20160815
  Serious: Yes (Other)
  Sender: FDA-Public Use
  Company Number: AU-PFIZER INC-2016192514

PATIENT
  Age: 42 Year
  Sex: Female

DRUGS (1)
  1. XELJANZ [Suspect]
     Active Substance: TOFACITINIB CITRATE
     Indication: RHEUMATOID ARTHRITIS
     Dosage: 5 MG, 2X/DAY
     Dates: start: 20150402, end: 201511

REACTIONS (4)
  - Urinary tract infection [Recovered/Resolved]
  - Oral candidiasis [Recovered/Resolved]
  - Lower respiratory tract infection [Recovered/Resolved]
  - Conjunctivitis [Recovered/Resolved]

NARRATIVE: CASE EVENT DATE: 2015
